FAERS Safety Report 22348654 (Version 1)
Quarter: 2023Q2

REPORT INFORMATION
  Report Type: Report from Study
  Country: US (occurrence: US)
  Receive Date: 20230522
  Receipt Date: 20230522
  Transmission Date: 20230722
  Serious: Yes (Other)
  Sender: FDA-Public Use
  Company Number: US-ABBVIE-4773202

PATIENT
  Age: 44 Year
  Sex: Female

DRUGS (1)
  1. RINVOQ [Suspect]
     Active Substance: UPADACITINIB
     Indication: Colitis ulcerative
     Dosage: FORM STRENGTH: 30 MILLIGRAM?LOADING DOSE: 45MG TABLET PER ORAL ONCE DAILY INITIAL 4 WEEKS.
     Route: 048
     Dates: start: 202212, end: 202303

REACTIONS (1)
  - Neoplasm malignant [Unknown]

NARRATIVE: CASE EVENT DATE: 20230201
